FAERS Safety Report 9684338 (Version 2)
Quarter: 2013Q4

REPORT INFORMATION
  Report Type: Spontaneous
  Country: US (occurrence: US)
  Receive Date: 20131112
  Receipt Date: 20131112
  Transmission Date: 20140711
  Serious: Yes (Life-Threatening, Hospitalization, Other)
  Sender: FDA-Public Use
  Company Number: US-SAVIENT-2013S1000105

PATIENT
  Age: 53 Year
  Sex: Male
  Weight: 88.53 kg

DRUGS (8)
  1. KRYSTEXXA [Suspect]
     Indication: GOUT
     Route: 042
     Dates: start: 20130829, end: 20130829
  2. KRYSTEXXA [Suspect]
     Indication: GOUTY TOPHUS
  3. COLCRYS [Concomitant]
  4. COCHLEAR PREDNISONE [Concomitant]
     Indication: PRODUCT USED FOR UNKNOWN INDICATION
     Route: 001
  5. ALTACE [Concomitant]
     Indication: HYPERTENSION
  6. TYLENOL [Concomitant]
     Indication: ALLERGY PROPHYLAXIS
     Route: 048
     Dates: start: 20130829, end: 20130829
  7. LORATADINE [Concomitant]
     Indication: ALLERGY PROPHYLAXIS
     Route: 048
     Dates: start: 20130829, end: 20130829
  8. SOLU-MEDROL [Concomitant]
     Indication: ALLERGY PROPHYLAXIS
     Route: 042
     Dates: start: 20130829, end: 20130829

REACTIONS (3)
  - Blood glucose increased [Unknown]
  - Anaphylactic reaction [Recovered/Resolved]
  - Ocular hyperaemia [Unknown]
